FAERS Safety Report 9305517 (Version 2)
Quarter: 2013Q3

REPORT INFORMATION
  Report Type: Spontaneous
  Country: US (occurrence: None)
  Receive Date: 20130520
  Receipt Date: 20130822
  Transmission Date: 20140515
  Serious: Yes (Other)
  Sender: FDA-Public Use
  Company Number: CC13-0539

PATIENT
  Age: 2 Year
  Sex: Male
  Weight: 13.61 kg

DRUGS (3)
  1. MOMETASONE FUROATE [Suspect]
     Indication: ECZEMA
     Dosage: APPLY DAILY
     Dates: start: 2011, end: 2011
  2. ZANTAC SYRUP [Concomitant]
  3. OMEPRAZOLE SYRUP [Concomitant]

REACTIONS (10)
  - Developmental delay [None]
  - Abnormal behaviour [None]
  - Sensory disturbance [None]
  - Maternal drugs affecting foetus [None]
  - Food allergy [None]
  - Allergy to animal [None]
  - Asthma [None]
  - Unevaluable event [None]
  - Eczema [None]
  - Gastrooesophageal reflux disease [None]
